FAERS Safety Report 14177570 (Version 4)
Quarter: 2017Q4

REPORT INFORMATION
  Report Type: Report from Study
  Country: CO (occurrence: CO)
  Receive Date: 20171110
  Receipt Date: 20171117
  Transmission Date: 20180321
  Serious: Yes (Hospitalization)
  Sender: FDA-Public Use
  Company Number: PHHY2017CO082851

PATIENT
  Age: 66 Year
  Sex: Male
  Weight: 79 kg

DRUGS (11)
  1. CARVEDILOL. [Suspect]
     Active Substance: CARVEDILOL
     Indication: PRODUCT USED FOR UNKNOWN INDICATION
     Dosage: 12.5 OT, BID (1 IN THE MORNING, 1 AT NIGHT)
     Route: 065
  2. ENTRESTO [Suspect]
     Active Substance: SACUBITRIL\VALSARTAN
     Indication: CARDIAC FAILURE
     Dosage: 50 MG, Q12H
     Route: 048
     Dates: start: 20170417
  3. SPIRONOLACTON [Concomitant]
     Active Substance: SPIRONOLACTONE
     Indication: PRODUCT USED FOR UNKNOWN INDICATION
     Dosage: 25 MG, UNK
     Route: 065
  4. FUROSEMIDE. [Concomitant]
     Active Substance: FUROSEMIDE
     Indication: PRODUCT USED FOR UNKNOWN INDICATION
     Dosage: 40 MG, (TWO IN THE MORNING AND ONE AT NIGHT)
     Route: 065
  5. WARFARIN [Concomitant]
     Active Substance: WARFARIN
     Indication: PRODUCT USED FOR UNKNOWN INDICATION
     Dosage: 5 MG, UNK
     Route: 065
  6. LEVOTHYROXINE. [Concomitant]
     Active Substance: LEVOTHYROXINE
     Indication: PRODUCT USED FOR UNKNOWN INDICATION
     Dosage: UNK
     Route: 065
  7. MANNITOL. [Concomitant]
     Active Substance: MANNITOL
     Indication: PRODUCT USED FOR UNKNOWN INDICATION
     Dosage: 0.1 MG, QD
     Route: 065
  8. LOVASTATIN. [Concomitant]
     Active Substance: LOVASTATIN
     Indication: PRODUCT USED FOR UNKNOWN INDICATION
     Dosage: UNK
     Route: 065
  9. ATORVASTATIN [Suspect]
     Active Substance: ATORVASTATIN
     Indication: PRODUCT USED FOR UNKNOWN INDICATION
     Route: 065
  10. LANITOP [Concomitant]
     Active Substance: METILDIGOXIN
     Indication: PRODUCT USED FOR UNKNOWN INDICATION
     Route: 065
  11. AMIODARONE [Concomitant]
     Active Substance: AMIODARONE
     Indication: PRODUCT USED FOR UNKNOWN INDICATION
     Dosage: UNK
     Route: 065

REACTIONS (23)
  - Hepatic failure [Unknown]
  - Jaundice [Unknown]
  - Ascites [Unknown]
  - Lung disorder [Unknown]
  - Amnesia [Unknown]
  - Blood potassium increased [Unknown]
  - Chromaturia [Unknown]
  - Blood urea abnormal [Unknown]
  - Pulmonary oedema [Unknown]
  - Heart rate decreased [Unknown]
  - Gallbladder disorder [Unknown]
  - Fluid retention [Unknown]
  - Troponin increased [Unknown]
  - Peripheral swelling [Unknown]
  - Nipple pain [Unknown]
  - Swelling [Unknown]
  - Blood bilirubin increased [Unknown]
  - Cardiac failure [Unknown]
  - Generalised oedema [Unknown]
  - Renal failure [Unknown]
  - Decreased appetite [Unknown]
  - International normalised ratio increased [Unknown]
  - Device damage [Unknown]

NARRATIVE: CASE EVENT DATE: 20170529
